FAERS Safety Report 22311655 (Version 1)
Quarter: 2023Q2

REPORT INFORMATION
  Report Type: Spontaneous
  Country: FR (occurrence: FR)
  Receive Date: 20230511
  Receipt Date: 20230511
  Transmission Date: 20230721
  Serious: Yes (Hospitalization, Other)
  Sender: FDA-Public Use
  Company Number: None

PATIENT
  Age: 53 Year
  Sex: Female
  Weight: 94 kg

DRUGS (4)
  1. IRBESARTAN [Suspect]
     Active Substance: IRBESARTAN
     Indication: Hypertension
     Dosage: 150 MG, QD
     Route: 048
     Dates: start: 20221004, end: 202210
  2. IMOVANE [Suspect]
     Active Substance: ZOPICLONE
     Indication: Sleep disorder
     Dosage: 1 DF, QD
     Route: 048
     Dates: start: 20221007, end: 202210
  3. EUPANTOL [Suspect]
     Active Substance: PANTOPRAZOLE SODIUM
     Indication: Prophylaxis
     Dosage: 20 MG, QD
     Route: 048
     Dates: start: 20221004, end: 202210
  4. LAMICTAL [Suspect]
     Active Substance: LAMOTRIGINE
     Indication: Suicidal ideation
     Dosage: 50 MG, BID (MORNING AND EVENING)
     Route: 048
     Dates: start: 20221003, end: 202210

REACTIONS (1)
  - Stevens-Johnson syndrome [Recovering/Resolving]

NARRATIVE: CASE EVENT DATE: 20221017
